FAERS Safety Report 8508247-X (Version None)
Quarter: 2012Q3

REPORT INFORMATION
  Report Type: 
  Country: None (occurrence: None)
  Receive Date: 20120713
  Receipt Date: 20120710
  Transmission Date: 20120928
  Serious: Yes (Other)
  Sender: FDA-Public Use
  Company Number: US-PFIZER INC-2012166668

PATIENT
  Sex: Female
  Weight: 52.608 kg

DRUGS (8)
  1. LYRICA [Suspect]
     Indication: PAIN IN EXTREMITY
  2. LYRICA [Suspect]
     Indication: ARTHRITIS
     Dosage: UNK
  3. LYRICA [Suspect]
     Indication: BACK PAIN
  4. OXYCODONE [Concomitant]
     Indication: PAIN
     Dosage: UNK
  5. ALEVE [Concomitant]
     Indication: PAIN
     Dosage: UNK
  6. CELEBREX [Suspect]
     Indication: ARTHRITIS
     Dosage: 200 MG, DAILY
     Dates: start: 20120101, end: 20120101
  7. CELEBREX [Suspect]
     Indication: BACK PAIN
  8. CELEBREX [Suspect]
     Indication: PAIN IN EXTREMITY

REACTIONS (6)
  - BACK DISORDER [None]
  - PAIN [None]
  - DRUG INEFFECTIVE [None]
  - ARTHRALGIA [None]
  - PAIN IN EXTREMITY [None]
  - HYPOAESTHESIA [None]
